FAERS Safety Report 5369217-6 (Version None)
Quarter: 2007Q2

REPORT INFORMATION
  Report Type: 
  Country: None (occurrence: None)
  Receive Date: 20070625
  Receipt Date: 20070613
  Transmission Date: 20071010
  Serious: Yes (Hospitalization)
  Sender: FDA-Public Use
  Company Number: DE-ROCHE-498233

PATIENT
  Age: 74 Year
  Sex: Female
  Weight: 55 kg

DRUGS (6)
  1. KEVATRIL [Suspect]
     Route: 042
     Dates: start: 20060815
  2. BEVACIZUMAB [Suspect]
     Route: 042
     Dates: start: 20060808
  3. IRINOTECAN HCL [Suspect]
     Route: 042
     Dates: start: 20060815
  4. FLUOROURACIL [Suspect]
     Route: 042
     Dates: start: 20060815
  5. ONCOFOLIC [Suspect]
     Route: 042
     Dates: start: 20060815
  6. DEXAMETHASONE [Suspect]
     Route: 042
     Dates: start: 20060815

REACTIONS (2)
  - ASTHENIA [None]
  - WHITE BLOOD CELL COUNT DECREASED [None]
